FAERS Safety Report 6390205-5 (Version None)
Quarter: 2009Q4

REPORT INFORMATION
  Report Type: 
  Country: None (occurrence: None)
  Receive Date: 20091006
  Receipt Date: 20090929
  Transmission Date: 20100525
  Serious: Yes (Hospitalization)
  Sender: FDA-Public Use
  Company Number: A0809543A

PATIENT
  Age: 29 Year
  Sex: Female

DRUGS (4)
  1. ONDANSETRON [Suspect]
     Indication: PREGNANCY
     Dates: start: 20060101, end: 20070101
  2. IRON [Concomitant]
     Route: 042
  3. VITAMIN B-12 [Concomitant]
  4. VITAMIN TAB [Concomitant]

REACTIONS (3)
  - DEHYDRATION [None]
  - DRUG EXPOSURE DURING PREGNANCY [None]
  - WEIGHT DECREASED [None]
